FAERS Safety Report 9365830 (Version 1)
Quarter: 2013Q2

REPORT INFORMATION
  Report Type: Spontaneous
  Country: FR (occurrence: FR)
  Receive Date: 20130625
  Receipt Date: 20130625
  Transmission Date: 20140414
  Serious: Yes (Hospitalization)
  Sender: FDA-Public Use
  Company Number: PHHY2013FR063803

PATIENT
  Sex: Female

DRUGS (3)
  1. AFINITOR [Suspect]
     Indication: BREAST CANCER
  2. AFINITOR [Suspect]
     Dosage: 5 MG
  3. TAMOXIFEN [Suspect]
     Indication: BREAST CANCER

REACTIONS (1)
  - Drug-induced liver injury [Unknown]
